FAERS Safety Report 8891068 (Version 2)
Quarter: 2012Q4

REPORT INFORMATION
  Report Type: 
  Country: US (occurrence: US)
  Receive Date: 20121107
  Receipt Date: 20121228
  Transmission Date: 20130627
  Serious: No
  Sender: FDA-Public Use
  Company Number: US-B.I. PHARMACEUTICALS,INC./RIDGEFIELD-2012-BP-27202BP

PATIENT
  Sex: Female
  Weight: 54 kg

DRUGS (6)
  1. SPIRIVA [Suspect]
     Indication: CHRONIC OBSTRUCTIVE PULMONARY DISEASE
     Dosage: 18 mcg
     Route: 055
     Dates: start: 201203
  2. ADVAIR [Concomitant]
     Indication: CHRONIC OBSTRUCTIVE PULMONARY DISEASE
     Route: 055
     Dates: start: 201111
  3. ALBUTEROL [Concomitant]
     Indication: DYSPNOEA
     Dates: start: 201111
  4. ATELVIA [Concomitant]
     Indication: OSTEOPOROSIS
     Dosage: 35 mg
     Route: 048
     Dates: start: 201110
  5. ASPIRIN [Concomitant]
     Indication: HYPERTENSION
     Dosage: 81 mg
     Route: 048
     Dates: start: 2010
  6. ASPIRIN [Concomitant]
     Indication: STRESS

REACTIONS (4)
  - Drug ineffective [Recovered/Resolved]
  - Drug ineffective [Recovered/Resolved]
  - Product quality issue [Recovered/Resolved]
  - Product quality issue [Recovered/Resolved]
